FAERS Safety Report 14508837 (Version 3)
Quarter: 2018Q1

REPORT INFORMATION
  Report Type: Spontaneous
  Country: IL (occurrence: IL)
  Receive Date: 20180209
  Receipt Date: 20180316
  Transmission Date: 20180509
  Serious: Yes (Hospitalization)
  Sender: FDA-Public Use
  Company Number: IL-ORPHAN EUROPE-2041676

PATIENT
  Age: 17 Year
  Sex: Male
  Weight: 26 kg

DRUGS (2)
  1. CARBAGLU [Suspect]
     Active Substance: CARGLUMIC ACID
     Indication: N-ACETYLGLUTAMATE SYNTHASE DEFICIENCY
     Route: 050
  2. CARBAGLU [Suspect]
     Active Substance: CARGLUMIC ACID
     Route: 050

REACTIONS (1)
  - Pancreatitis [Unknown]

NARRATIVE: CASE EVENT DATE: 20180204
